FAERS Safety Report 13250958 (Version 1)
Quarter: 2017Q1

REPORT INFORMATION
  Report Type: Spontaneous
  Country: US (occurrence: US)
  Receive Date: 20170220
  Receipt Date: 20170220
  Transmission Date: 20170428
  Serious: No
  Sender: FDA-Public Use
  Company Number: US-TEVA-730880ACC

PATIENT
  Age: 7 Week

DRUGS (1)
  1. AMOXICILLIN. [Suspect]
     Active Substance: AMOXICILLIN
     Dosage: 200 MG/5 ML
     Dates: start: 20161019

REACTIONS (2)
  - Extra dose administered [Unknown]
  - Incorrect product storage [Unknown]
